FAERS Safety Report 24627166 (Version 1)
Quarter: 2024Q4

REPORT INFORMATION
  Report Type: Spontaneous
  Country: IL (occurrence: IL)
  Receive Date: 20241116
  Receipt Date: 20241116
  Transmission Date: 20250115
  Serious: Yes (Other)
  Sender: MERCK
  Company Number: IL-009507513-2411ISR004692

PATIENT
  Age: 48 Year
  Sex: Female

DRUGS (9)
  1. KEYTRUDA [Suspect]
     Active Substance: PEMBROLIZUMAB
     Indication: Renal cancer metastatic
     Dosage: 200 MILLIGRAM, Q3W
     Dates: start: 202211
  2. LENVATINIB MESYLATE [Suspect]
     Active Substance: LENVATINIB MESYLATE
     Indication: Renal cancer metastatic
     Dosage: 20 MILLIGRAM, QD
     Dates: start: 202211, end: 2022
  3. LENVATINIB MESYLATE [Suspect]
     Active Substance: LENVATINIB MESYLATE
     Dosage: 14 MILLIGRAM, QD
     Dates: start: 2023, end: 2023
  4. LENVATINIB MESYLATE [Suspect]
     Active Substance: LENVATINIB MESYLATE
     Dosage: 14 MILLIGRAM, QD
     Dates: start: 202306, end: 2024
  5. LENVATINIB MESYLATE [Suspect]
     Active Substance: LENVATINIB MESYLATE
     Dosage: 10 MILLIGRAM, QD
     Dates: start: 2024, end: 2024
  6. IPILIMUMAB [Suspect]
     Active Substance: IPILIMUMAB
     Indication: Renal cancer metastatic
     Dosage: 50 MILLIGRAM
     Dates: start: 2023, end: 202310
  7. EUTHYROX [Concomitant]
     Active Substance: LEVOTHYROXINE SODIUM
     Dosage: UNK
  8. LOSEC [Concomitant]
     Active Substance: OMEPRAZOLE
  9. CILAZAPRIL ANHYDROUS [Concomitant]
     Active Substance: CILAZAPRIL ANHYDROUS

REACTIONS (24)
  - Posterior reversible encephalopathy syndrome [Unknown]
  - Chest injury [Unknown]
  - Malignant neoplasm progression [Unknown]
  - Immune-mediated arthritis [Unknown]
  - Hypothyroidism [Unknown]
  - White matter lesion [Unknown]
  - Pallor [Unknown]
  - Fall [Unknown]
  - Hot flush [Unknown]
  - Blood lactate dehydrogenase increased [Recovering/Resolving]
  - Faeces soft [Unknown]
  - Cortisol decreased [Recovered/Resolved]
  - Liver disorder [Unknown]
  - Weight decreased [Unknown]
  - Pain [Unknown]
  - Hypertension [Unknown]
  - Alopecia [Unknown]
  - Myalgia [Unknown]
  - Nausea [Unknown]
  - Headache [Recovered/Resolved]
  - Diarrhoea [Unknown]
  - Asthenia [Unknown]
  - Adverse drug reaction [Unknown]
  - Product use issue [Unknown]

NARRATIVE: CASE EVENT DATE: 20230101
